FAERS Safety Report 7991146-X (Version None)
Quarter: 2011Q4

REPORT INFORMATION
  Report Type: 
  Country: None (occurrence: None)
  Receive Date: 20111219
  Receipt Date: 20111216
  Transmission Date: 20120403
  Serious: Yes (Death)
  Sender: FDA-Public Use
  Company Number: TN-SANOFI-AVENTIS-2011SA082540

PATIENT
  Age: 54 Year
  Sex: Male

DRUGS (7)
  1. INSULIN [Concomitant]
     Route: 058
     Dates: end: 20111206
  2. PLAVIX [Suspect]
     Route: 048
     Dates: start: 20110307, end: 20111206
  3. PLAVIX [Suspect]
     Route: 048
     Dates: start: 20110307, end: 20111206
  4. ATORVASTATIN [Concomitant]
     Route: 048
     Dates: end: 20111206
  5. ASPIRIN [Concomitant]
     Route: 048
     Dates: end: 20111206
  6. CAPTOPRIL [Concomitant]
     Route: 048
     Dates: end: 20111206
  7. ISOSORBIDE DINITRATE [Concomitant]
     Route: 048
     Dates: end: 20111206

REACTIONS (1)
  - DIABETES MELLITUS INADEQUATE CONTROL [None]
